FAERS Safety Report 8128455-X (Version None)
Quarter: 2012Q1

REPORT INFORMATION
  Report Type: 
  Country: None (occurrence: None)
  Receive Date: 20120210
  Receipt Date: 20120127
  Transmission Date: 20120608
  Serious: Yes (Hospitalization, Other)
  Sender: FDA-Public Use
  Company Number: JP-ROCHE-1023781

PATIENT
  Sex: Female

DRUGS (19)
  1. OMALIZUMAB [Suspect]
     Dates: start: 20110311, end: 20110618
  2. THEOPHYLLINE [Concomitant]
  3. OMALIZUMAB [Suspect]
     Indication: ASTHMA
     Route: 058
     Dates: start: 20101119
  4. OMALIZUMAB [Suspect]
     Dates: start: 20110114
  5. SEREVENT [Concomitant]
     Dates: start: 20070723, end: 20110120
  6. AMARYL [Concomitant]
     Dates: start: 20101119
  7. NORVASC [Concomitant]
     Dates: start: 20101019
  8. FAMOTIDINE [Concomitant]
     Dates: start: 20101119
  9. SYMBICORT [Concomitant]
     Dates: start: 20110121
  10. OMALIZUMAB [Suspect]
     Dates: start: 20110204
  11. MONTELUKAST SODIUM [Concomitant]
     Dates: start: 20070723
  12. PULMICORT-100 [Concomitant]
     Dates: start: 20070723, end: 20110120
  13. HOKUNALIN [Concomitant]
     Dates: start: 20070723, end: 20110217
  14. URSO 250 [Concomitant]
     Dates: start: 20101119
  15. ALVESCO [Concomitant]
     Dates: start: 20080711, end: 20110120
  16. ALBUTEROL SULFATE [Concomitant]
     Dates: start: 20070723
  17. THEOPHYLLINE [Concomitant]
     Dates: start: 20070723
  18. CRESTOR [Concomitant]
     Dates: start: 20101019
  19. ITRACONAZOLE [Concomitant]
     Dates: start: 20101119, end: 20101217

REACTIONS (4)
  - ASTHMA [None]
  - ASPARTATE AMINOTRANSFERASE INCREASED [None]
  - LIVER DISORDER [None]
  - ALANINE AMINOTRANSFERASE INCREASED [None]
